FAERS Safety Report 8466353-2 (Version None)
Quarter: 2012Q2

REPORT INFORMATION
  Report Type: 
  Country: None (occurrence: None)
  Receive Date: 20120620
  Receipt Date: 20120620
  Transmission Date: 20120825
  Serious: No
  Sender: FDA-Public Use
  Company Number: None

PATIENT

DRUGS (1)
  1. ESCITALOPRAM [Suspect]
     Indication: GENERALISED ANXIETY DISORDER
     Dosage: 10 MG EACH DAY PO
     Route: 048
     Dates: start: 20120604, end: 20120605

REACTIONS (7)
  - SYNCOPE [None]
  - BLOOD GLUCOSE DECREASED [None]
  - NAUSEA [None]
  - FEAR [None]
  - PRODUCT SUBSTITUTION ISSUE [None]
  - DIZZINESS [None]
  - HYPERVENTILATION [None]
